FAERS Safety Report 10024231 (Version 1)
Quarter: 2014Q1

REPORT INFORMATION
  Report Type: Spontaneous
  Country: BR (occurrence: None)
  Receive Date: 20140128
  Receipt Date: 20140128
  Transmission Date: 20141002
  Serious: Yes (Other)
  Sender: FDA-Public Use
  Company Number: 2014SA001485

PATIENT
  Sex: Male
  Weight: 58 kg

DRUGS (11)
  1. FABRAZYME [Suspect]
     Indication: FABRY^S DISEASE
     Dosage: INTRAVENOUS (NOT OTHERWISE SPECIFIED)
     Route: 042
     Dates: start: 20121105
  2. SPIRONOLACTONE [Concomitant]
  3. BUDESONIDE/FORMOTEROL [Concomitant]
  4. AEROLIN [Concomitant]
  5. SIMVASTATIN [Concomitant]
  6. DRUGS FOR OBSTUCTIVE [Concomitant]
  7. AIRWAY DISEASES [Concomitant]
  8. FERROUS SULFATE [Concomitant]
  9. CARVEDILOL [Concomitant]
  10. LOSARTAN [Concomitant]
  11. FUROSEMIDE [Concomitant]

REACTIONS (1)
  - Lipids increased [None]
